FAERS Safety Report 26165161 (Version 2)
Quarter: 2025Q4

REPORT INFORMATION
  Report Type: Spontaneous
  Country: BR (occurrence: BR)
  Receive Date: 20251216
  Receipt Date: 20251222
  Transmission Date: 20260117
  Serious: Yes (Death, Hospitalization, Other)
  Sender: MERCK SHARP & DOHME LLC
  Company Number: BR-009507513-2359549

PATIENT
  Age: 33 Year
  Sex: Female

DRUGS (5)
  1. WINREVAIR [Suspect]
     Active Substance: SOTATERCEPT-CSRK
     Dosage: 1ST DOSE; STRENGTH: 45 MG IN 21-DAY CYCLES
  2. WINREVAIR [Suspect]
     Active Substance: SOTATERCEPT-CSRK
     Dosage: 2ND DOSE; STRENGTH: 45 MG IN 21-DAY CYCLES
  3. WINREVAIR [Suspect]
     Active Substance: SOTATERCEPT-CSRK
     Dosage: 3RD DOSE; STRENGTH: 45 MG IN 21-DAY CYCLES
  4. WINREVAIR [Suspect]
     Active Substance: SOTATERCEPT-CSRK
     Dosage: 4TH DOSE; STRENGTH: 45 MG IN 21-DAY CYCLES
  5. WINREVAIR [Suspect]
     Active Substance: SOTATERCEPT-CSRK
     Dosage: 5TH DOSE; STRENGTH: 45 MG IN 21-DAY CYCLES

REACTIONS (4)
  - Death [Fatal]
  - Cardiac failure [Unknown]
  - Hospitalisation [Unknown]
  - Urinary tract infection [Unknown]

NARRATIVE: CASE EVENT DATE: 20251208
